FAERS Safety Report 9018143 (Version 3)
Quarter: 2013Q1

REPORT INFORMATION
  Report Type: Spontaneous
  Country: JP (occurrence: JP)
  Receive Date: 20130117
  Receipt Date: 20130320
  Transmission Date: 20140127
  Serious: Yes (Hospitalization)
  Sender: FDA-Public Use
  Company Number: JP-ALLERGAN-1300437US

PATIENT
  Age: 45 Year
  Sex: Male

DRUGS (6)
  1. BOTOX [Suspect]
     Indication: GAIT DISTURBANCE
     Dosage: UNK UNK, SINGLE
     Route: 030
  2. BOTOX [Suspect]
     Dosage: UNK UNK, SINGLE
     Route: 030
  3. BOTOX [Suspect]
     Dosage: UNK UNK, SINGLE
     Route: 030
  4. BOTOX [Suspect]
     Dosage: UNK UNK, SINGLE
     Route: 030
  5. WARFARIN K [Concomitant]
     Indication: DEEP VEIN THROMBOSIS
     Dosage: UNK UNK, QD
     Route: 048
     Dates: end: 20120812
  6. WARFARIN K [Concomitant]
     Dosage: 4.5 MG, QD
     Route: 048
     Dates: start: 20120813

REACTIONS (13)
  - Muscle tightness [Unknown]
  - Pain in extremity [Unknown]
  - Muscular weakness [Unknown]
  - Gait disturbance [Recovered/Resolved]
  - Local swelling [Recovered/Resolved]
  - Fibrin D dimer [Unknown]
  - Inflammation [Unknown]
  - Subcutaneous haematoma [Recovered/Resolved]
  - Off label use [Unknown]
  - Haemorrhage [Recovered/Resolved]
  - Fibrin D dimer [Unknown]
  - Inflammation [Unknown]
  - Pain [Unknown]
